FAERS Safety Report 7411707-6 (Version None)
Quarter: 2011Q2

REPORT INFORMATION
  Report Type: 
  Country: None (occurrence: None)
  Receive Date: 20110413
  Receipt Date: 20110120
  Transmission Date: 20111010
  Serious: Yes (Other)
  Sender: FDA-Public Use
  Company Number: US-BRISTOL-MYERS SQUIBB COMPANY-15394398

PATIENT
  Age: 63 Year
  Sex: Male

DRUGS (1)
  1. ERBITUX [Suspect]
     Indication: COLON CANCER
     Dosage: 1ST DOSE.
     Route: 042
     Dates: start: 20101108

REACTIONS (5)
  - BLOOD PRESSURE INCREASED [None]
  - HYPOTENSION [None]
  - FLUSHING [None]
  - BRONCHOSPASM [None]
  - RESPIRATORY DISTRESS [None]
